FAERS Safety Report 13145658 (Version 2)
Quarter: 2017Q1

REPORT INFORMATION
  Report Type: Report from Study
  Country: IT (occurrence: JP)
  Receive Date: 20170124
  Receipt Date: 20170307
  Transmission Date: 20170428
  Serious: Yes (Death, Hospitalization)
  Sender: FDA-Public Use
  Company Number: IT-SIGMA-TAU US-2016STPI000868

PATIENT
  Age: 79 Year
  Sex: Female

DRUGS (8)
  1. CARNITOR [Suspect]
     Active Substance: LEVOCARNITINE
     Indication: CARNITINE DEFICIENCY
     Dosage: 1500 MG, QD
     Route: 048
     Dates: start: 20150713, end: 20151112
  2. PARIET [Concomitant]
     Active Substance: RABEPRAZOLE SODIUM
     Dosage: UNK
     Dates: start: 20150722, end: 20151215
  3. URSODEOXYCHOLIC ACID [Concomitant]
     Active Substance: URSODIOL
     Dosage: UNK
     Dates: end: 20151215
  4. SPIRONOLACTONE A L [Concomitant]
     Active Substance: SPIRONOLACTONE
     Dosage: UNK
     Dates: end: 20151215
  5. SAMSCA [Concomitant]
     Active Substance: TOLVAPTAN
     Dosage: UNK
     Dates: start: 20150909, end: 20151215
  6. MONILAC [Concomitant]
     Active Substance: LACTULOSE
     Dosage: UNK
     Dates: start: 20150713, end: 20151215
  7. FUROSEMIDE. [Concomitant]
     Active Substance: FUROSEMIDE
     Dosage: UNK
     Dates: end: 20151215
  8. METHYCOBAL [Concomitant]
     Active Substance: METHYLCOBALAMIN
     Dosage: UNK
     Dates: end: 20151215

REACTIONS (10)
  - Pneumonia aspiration [Recovering/Resolving]
  - Hepatic cirrhosis [Fatal]
  - Vulvovaginal candidiasis [Recovered/Resolved]
  - Anal fistula [Recovering/Resolving]
  - White blood cell count increased [Recovered/Resolved]
  - Dysphagia [Not Recovered/Not Resolved]
  - Gastrointestinal haemorrhage [Recovering/Resolving]
  - Gastrointestinal infection [Recovering/Resolving]
  - Pyrexia [None]
  - Weight decreased [Not Recovered/Not Resolved]

NARRATIVE: CASE EVENT DATE: 20150105
